FAERS Safety Report 8010438-1 (Version None)
Quarter: 2011Q4

REPORT INFORMATION
  Report Type: 
  Country: None (occurrence: None)
  Receive Date: 20111228
  Receipt Date: 20111222
  Transmission Date: 20120403
  Serious: Yes (Hospitalization)
  Sender: FDA-Public Use
  Company Number: US-BRACCO-007287

PATIENT
  Sex: Female
  Weight: 73 kg

DRUGS (12)
  1. PROHANCE [Suspect]
     Indication: INFECTION
     Route: 042
     Dates: start: 20111219, end: 20111219
  2. SPIRONOLACTONE [Concomitant]
     Route: 048
  3. ACETAMINOP. W/BUTALBITAL/CAFF./CODEINE PHOSP. [Concomitant]
     Dosage: PRN EVERY SIX HOURS
     Route: 048
  4. SAVELLA [Concomitant]
     Route: 048
  5. PROHANCE [Suspect]
     Indication: NUCLEAR MAGNETIC RESONANCE IMAGING
     Route: 042
     Dates: start: 20111219, end: 20111219
  6. FLUOXETINE [Concomitant]
     Route: 048
  7. VITAMIN D [Concomitant]
  8. LEVOTHYROXINE SODIUM [Concomitant]
     Route: 048
  9. BUMEX [Concomitant]
     Route: 048
  10. ADVAIR DISKUS 100/50 [Concomitant]
     Dosage: DAILY
  11. CALCIUM ACETATE [Concomitant]
  12. PROHANCE [Suspect]
     Indication: OSTEOMYELITIS
     Route: 042
     Dates: start: 20111219, end: 20111219

REACTIONS (1)
  - ANAPHYLACTIC REACTION [None]
